FAERS Safety Report 9643368 (Version 1)
Quarter: 2013Q4

REPORT INFORMATION
  Report Type: Spontaneous
  Country: US (occurrence: US)
  Receive Date: 20131024
  Receipt Date: 20131024
  Transmission Date: 20140711
  Serious: Yes (Other)
  Sender: FDA-Public Use
  Company Number: CHPA2013US015878

PATIENT
  Age: 74 Year
  Sex: Female

DRUGS (2)
  1. MAALOX ADV MAXIMUM STRENGTH ANTACID/ANTIGAS [Suspect]
     Indication: ULCER
     Dosage: 1 TABLESPOON, 2-3 TIMES PER WEEK
     Route: 048
  2. MAALOX ADV MAXIMUM STRENGTH ANTACID/ANTIGAS [Suspect]
     Indication: OFF LABEL USE

REACTIONS (2)
  - Ulcer [Not Recovered/Not Resolved]
  - Expired drug administered [Unknown]
